FAERS Safety Report 5940638-3 (Version None)
Quarter: 2008Q4

REPORT INFORMATION
  Report Type: 
  Country: None (occurrence: None)
  Receive Date: 20081103
  Receipt Date: 20081103
  Transmission Date: 20090506
  Serious: No
  Sender: FDA-Public Use
  Company Number: None

PATIENT
  Weight: 97.5234 kg

DRUGS (1)
  1. POLYETHLENE GLYCOL 3350 [Suspect]
     Indication: CONSTIPATION
     Dosage: 1 HEAPING TBS / DAILY DRINK
     Dates: start: 20081007, end: 20081014

REACTIONS (1)
  - RASH [None]
